FAERS Safety Report 6783339-4 (Version None)
Quarter: 2010Q2

REPORT INFORMATION
  Report Type: 
  Country: None (occurrence: None)
  Receive Date: 20100622
  Receipt Date: 20100615
  Transmission Date: 20101027
  Serious: Yes (Hospitalization)
  Sender: FDA-Public Use
  Company Number: FR-KINGPHARMUSA00001-K201000744

PATIENT
  Age: 69 Year
  Sex: Male

DRUGS (2)
  1. ALTACE [Suspect]
     Indication: CARDIAC FAILURE
     Dosage: 5 MG, QD
     Route: 048
     Dates: start: 20100318
  2. PREVISCAN [Concomitant]
     Dosage: 20 MG, UNK
     Route: 048

REACTIONS (2)
  - SINUS ARREST [None]
  - SINUS BRADYCARDIA [None]
